FAERS Safety Report 7495387-X (Version None)
Quarter: 2011Q2

REPORT INFORMATION
  Report Type: 
  Country: None (occurrence: None)
  Receive Date: 20110523
  Receipt Date: 20110518
  Transmission Date: 20111010
  Serious: Yes (Life-Threatening, Hospitalization)
  Sender: FDA-Public Use
  Company Number: DE-ELI_LILLY_AND_COMPANY-DE201105005389

PATIENT
  Age: 70 Year
  Sex: Male

DRUGS (11)
  1. SIMVA [Concomitant]
     Dosage: 80 MG, QD
  2. MOXONIDIN [Concomitant]
     Dosage: 0.3 MG, QD
  3. BYETTA [Suspect]
     Indication: TYPE 2 DIABETES MELLITUS
     Dosage: 10 UG, BID
     Route: 058
     Dates: start: 20080923, end: 20100923
  4. METFORMIN [Concomitant]
     Dosage: 2550 MG, QD
  5. GLYBURIDE [Concomitant]
     Dosage: 7 MG, QD
  6. JUTABLOC [Concomitant]
     Dosage: 200 MG, QD
  7. HYDROCHLOROTHIAZIDE [Concomitant]
     Dosage: 25 MG, UNKNOWN
  8. ENALAPRIL MALEATE [Concomitant]
     Dosage: 10 MG, QD
  9. NEPRESOL [Concomitant]
     Dosage: 50 MG, QD
  10. AMLODIPINE BESYLATE [Concomitant]
     Dosage: 10 MG, QD
  11. ATACAND [Concomitant]
     Dosage: 4 MG, QD

REACTIONS (2)
  - METASTASES TO LIVER [None]
  - PANCREATIC CARCINOMA [None]
